FAERS Safety Report 12417867 (Version 3)
Quarter: 2016Q3

REPORT INFORMATION
  Report Type: Spontaneous
  Country: IT (occurrence: IT)
  Receive Date: 20160531
  Receipt Date: 20160729
  Transmission Date: 20161109
  Serious: Yes (Other)
  Sender: FDA-Public Use
  Company Number: PHHY2016IT071881

PATIENT
  Age: 44 Year
  Sex: Female
  Weight: 56 kg

DRUGS (4)
  1. ZARZIO [Suspect]
     Active Substance: FILGRASTIM
     Indication: FEBRILE NEUTROPENIA
     Dosage: 30 U, CYCLIC
     Route: 058
     Dates: start: 20160108, end: 20160120
  2. CYCLOPHOSPHAMIDE. [Concomitant]
     Active Substance: CYCLOPHOSPHAMIDE
     Indication: PRODUCT USED FOR UNKNOWN INDICATION
     Route: 065
  3. ADRIAMYCIN [Concomitant]
     Active Substance: DOXORUBICIN HYDROCHLORIDE
     Indication: PRODUCT USED FOR UNKNOWN INDICATION
     Route: 065
  4. LEVOFLOXACIN. [Concomitant]
     Active Substance: LEVOFLOXACIN
     Indication: FEBRILE NEUTROPENIA
     Dosage: 500 MG, UNK
     Route: 048
     Dates: start: 20160115, end: 20160120

REACTIONS (2)
  - Drug ineffective [Recovered/Resolved]
  - Product measured potency issue [Recovered/Resolved]

NARRATIVE: CASE EVENT DATE: 20160115
